FAERS Safety Report 6766565-X (Version None)
Quarter: 2010Q2

REPORT INFORMATION
  Report Type: 
  Country: None (occurrence: None)
  Receive Date: 20100611
  Receipt Date: 20100602
  Transmission Date: 20101027
  Serious: Yes (Hospitalization)
  Sender: FDA-Public Use
  Company Number: FR-ROCHE-707238

PATIENT
  Age: 46 Year
  Sex: Female

DRUGS (2)
  1. CELLCEPT [Suspect]
     Route: 065
     Dates: start: 20050101
  2. PROGRAFT [Suspect]
     Route: 065
     Dates: start: 20050101

REACTIONS (2)
  - BALANCE DISORDER [None]
  - GAIT DISTURBANCE [None]
